FAERS Safety Report 20805652 (Version 1)
Quarter: 2022Q2

REPORT INFORMATION
  Report Type: Other
  Country: LT (occurrence: None)
  Receive Date: 20220510
  Receipt Date: 20220510
  Transmission Date: 20220721
  Serious: Yes (Other)
  Sender: FDA-Public Use
  Company Number: LT-Umedica-000275

PATIENT
  Age: 29 Year
  Sex: Female

DRUGS (2)
  1. SILDENAFIL [Suspect]
     Active Substance: SILDENAFIL
     Indication: Pulmonary arterial hypertension
  2. BOSENTAN [Suspect]
     Active Substance: BOSENTAN
     Indication: Pulmonary arterial hypertension

REACTIONS (4)
  - Exposure during pregnancy [Unknown]
  - Vascular resistance pulmonary increased [Unknown]
  - Ejection fraction decreased [Unknown]
  - Abortion induced [Unknown]
